FAERS Safety Report 13441684 (Version 1)
Quarter: 2017Q2

REPORT INFORMATION
  Report Type: Spontaneous
  Country: FR (occurrence: FR)
  Receive Date: 20170413
  Receipt Date: 20170413
  Transmission Date: 20170830
  Serious: Yes (Congenital Anomaly, Other)
  Sender: FDA-Public Use
  Company Number: FR-SUN PHARMACEUTICAL INDUSTRIES LTD-2017RR-137952

PATIENT
  Sex: Male

DRUGS (15)
  1. VALPROATE DE SODIUM RPG LP [Suspect]
     Active Substance: VALPROATE SODIUM
     Indication: EPILEPSY
     Dosage: UNK
     Route: 064
     Dates: start: 20080708
  2. VALPROATE DE SODIUM RPG LP [Suspect]
     Active Substance: VALPROATE SODIUM
     Dosage: 1 G, DAILY
     Route: 064
     Dates: start: 20080930
  3. VALPROATE DE SODIUM RPG LP [Suspect]
     Active Substance: VALPROATE SODIUM
     Dosage: UNK
     Route: 064
     Dates: start: 20090106
  4. VALPROATE DE SODIUM RPG LP [Suspect]
     Active Substance: VALPROATE SODIUM
     Dosage: UNK
     Route: 064
     Dates: start: 20090107
  5. DEPAKINE [Suspect]
     Active Substance: VALPROATE SODIUM
     Dosage: 1 G, DAILY
     Route: 064
     Dates: start: 20080912
  6. DEPAKINE [Suspect]
     Active Substance: VALPROATE SODIUM
     Dosage: UNK
     Route: 064
     Dates: start: 20081021
  7. DEPAKINE [Suspect]
     Active Substance: VALPROATE SODIUM
     Dosage: UNK
     Route: 064
     Dates: start: 20090107
  8. DEPAKINE [Suspect]
     Active Substance: VALPROATE SODIUM
     Dosage: 1 G, DAILY
     Route: 064
     Dates: start: 20081127
  9. FOLIC ACID. [Concomitant]
     Active Substance: FOLIC ACID
     Indication: PRODUCT USED FOR UNKNOWN INDICATION
     Dosage: UNK
     Route: 064
  10. DEPAKINE [Suspect]
     Active Substance: VALPROATE SODIUM
     Indication: EPILEPSY
     Dosage: UNK
     Route: 064
     Dates: start: 20080708
  11. DEPAKINE [Suspect]
     Active Substance: VALPROATE SODIUM
     Dosage: 1 G, DAILY
     Route: 064
     Dates: start: 20080930
  12. VALPROATE DE SODIUM RPG LP [Suspect]
     Active Substance: VALPROATE SODIUM
     Dosage: 1 G, DAILY
     Route: 064
     Dates: start: 20081127
  13. VALPROATE DE SODIUM RPG LP [Suspect]
     Active Substance: VALPROATE SODIUM
     Dosage: UNK
     Route: 064
     Dates: start: 20081021
  14. DEPAKINE [Suspect]
     Active Substance: VALPROATE SODIUM
     Dosage: UNK
     Route: 064
     Dates: start: 20090106
  15. VALPROATE DE SODIUM RPG LP [Suspect]
     Active Substance: VALPROATE SODIUM
     Dosage: 1 G, DAILY
     Route: 064
     Dates: start: 20080912

REACTIONS (13)
  - Foot deformity [Recovering/Resolving]
  - Maternal drugs affecting foetus [None]
  - Toxicity to various agents [None]
  - Disturbance in attention [Unknown]
  - Foetal exposure during pregnancy [Unknown]
  - Speech disorder developmental [Unknown]
  - Epilepsy [Unknown]
  - Eye haemangioma [Recovering/Resolving]
  - Drooling [Unknown]
  - Petit mal epilepsy [Unknown]
  - Haemangioma [Unknown]
  - Abnormal behaviour [Unknown]
  - Premature baby [Unknown]
